FAERS Safety Report 8425681-7 (Version None)
Quarter: 2012Q2

REPORT INFORMATION
  Report Type: 
  Country: None (occurrence: None)
  Receive Date: 20120611
  Receipt Date: 20120606
  Transmission Date: 20120825
  Serious: Yes (Hospitalization, Other)
  Sender: FDA-Public Use
  Company Number: PHHY2012AR041546

PATIENT
  Sex: Male

DRUGS (1)
  1. CLOZAPINE [Suspect]
     Indication: SCHIZOPHRENIA, PARANOID TYPE
     Dosage: 125 MG, DAILY
     Dates: start: 20030402

REACTIONS (4)
  - HIP FRACTURE [None]
  - PNEUMONIA [None]
  - PULMONARY OEDEMA [None]
  - FALL [None]
